FAERS Safety Report 19035885 (Version 1)
Quarter: 2021Q1

REPORT INFORMATION
  Report Type: Spontaneous
  Country: US (occurrence: US)
  Receive Date: 20210321
  Receipt Date: 20210321
  Transmission Date: 20210420
  Serious: No
  Sender: FDA-Public Use
  Company Number: US-JNJFOC-20210318601

PATIENT
  Age: 45 Year
  Sex: Male
  Weight: 76 kg

DRUGS (1)
  1. MENS ROGAINE EXTRA STRENGTH [Suspect]
     Active Substance: MINOXIDIL
     Indication: HAIR GROWTH ABNORMAL
     Dosage: DOSAGE RECOMMENDED ON THE INSTRUCTIONS?LAST DOSE ADMINISTERED: 02?MAR?2021
     Route: 061
     Dates: start: 20201101

REACTIONS (1)
  - Drug ineffective [Unknown]
